APPROVED DRUG PRODUCT: CLODERM
Active Ingredient: CLOCORTOLONE PIVALATE
Strength: 0.1%
Dosage Form/Route: CREAM;TOPICAL
Application: N017765 | Product #001 | TE Code: AB
Applicant: LEGACY PHARMA INC
Approved: Approved Prior to Jan 1, 1982 | RLD: Yes | RS: Yes | Type: RX